FAERS Safety Report 6811009-2 (Version None)
Quarter: 2010Q2

REPORT INFORMATION
  Report Type: 
  Country: None (occurrence: None)
  Receive Date: 20100630
  Receipt Date: 20081230
  Transmission Date: 20101027
  Serious: No
  Sender: FDA-Public Use
  Company Number: US-PFIZER INC-2009150569

PATIENT
  Sex: Male

DRUGS (5)
  1. NICOTROL [Suspect]
     Indication: SMOKING CESSATION THERAPY
     Dosage: UNK
     Route: 048
     Dates: start: 20081230
  2. DEPAKOTE [Concomitant]
     Dosage: 300 MG, UNK
  3. DEPAKOTE [Concomitant]
     Dosage: 250 MG, UNK
  4. SEROQUEL [Concomitant]
     Dosage: 400 MG, UNK
  5. BENZTROPINE MESYLATE [Concomitant]
     Dosage: 200 MG, UNK

REACTIONS (1)
  - DRUG INEFFECTIVE [None]
